FAERS Safety Report 7295325-9 (Version None)
Quarter: 2011Q1

REPORT INFORMATION
  Report Type: 
  Country: None (occurrence: None)
  Receive Date: 20110207
  Receipt Date: 20110131
  Transmission Date: 20110831
  Serious: Yes (Disabling)
  Sender: FDA-Public Use
  Company Number: OSCN-NO-1102L-0047

PATIENT
  Age: 61 Year
  Sex: Female

DRUGS (1)
  1. OMNISCAN [Suspect]
     Indication: RENAL FAILURE ACUTE
     Dosage: SINGLE DOSE
     Dates: start: 20020601, end: 20020601

REACTIONS (8)
  - MUSCLE FIBROSIS [None]
  - SKIN HYPERTROPHY [None]
  - MYOCARDIAL INFARCTION [None]
  - MUSCLE CONTRACTURE [None]
  - MOBILITY DECREASED [None]
  - MYOSITIS [None]
  - WHEELCHAIR USER [None]
  - ASTHENIA [None]
